FAERS Safety Report 9019435 (Version 2)
Quarter: 2013Q3

REPORT INFORMATION
  Report Type: Spontaneous
  Country: FR (occurrence: FR)
  Receive Date: 20130118
  Receipt Date: 20130819
  Transmission Date: 20140515
  Serious: Yes (Hospitalization, Other)
  Sender: FDA-Public Use
  Company Number: FR-PFIZER INC-2013014009

PATIENT
  Age: 61 Year
  Sex: Female

DRUGS (12)
  1. ARACYTINE [Suspect]
     Indication: MYELOID LEUKAEMIA
     Dosage: UNK
     Route: 042
     Dates: start: 20090824
  2. CERUBIDINE [Suspect]
     Indication: MYELOID LEUKAEMIA
     Dosage: UNK
     Route: 042
     Dates: start: 20090824
  3. TIENAM [Concomitant]
     Dosage: UNK
  4. VANCOMYCIN [Concomitant]
     Dosage: UNK
  5. COLIMYCINE [Concomitant]
     Dosage: UNK
  6. LEVOTHYROX [Concomitant]
     Dosage: UNK
  7. SEROPLEX [Concomitant]
     Dosage: UNK
  8. LEXOMIL [Concomitant]
     Dosage: UNK
  9. TOPALGIC [Concomitant]
     Dosage: UNK
  10. VFEND [Concomitant]
     Dosage: UNK
  11. MOPRAL [Concomitant]
     Dosage: UNK
  12. NEUPOGEN [Concomitant]
     Dosage: UNK

REACTIONS (9)
  - Respiratory distress [Recovered/Resolved]
  - Interstitial lung disease [Unknown]
  - Bone marrow failure [Unknown]
  - Acute pulmonary oedema [Unknown]
  - Klebsiella infection [Unknown]
  - Citrobacter infection [Unknown]
  - Candida infection [Unknown]
  - Hypertension [Unknown]
  - Diastolic dysfunction [Unknown]
